FAERS Safety Report 4726907-3 (Version None)
Quarter: 2005Q3

REPORT INFORMATION
  Report Type: 
  Country: None (occurrence: None)
  Receive Date: 20050726
  Receipt Date: 20050711
  Transmission Date: 20060218
  Serious: Yes (Hospitalization, Other)
  Sender: FDA-Public Use
  Company Number: HQWYE849212MAY04

PATIENT
  Age: 61 Year
  Sex: Female
  Weight: 72.64 kg

DRUGS (3)
  1. PREMPRO [Suspect]
     Indication: MENOPAUSAL SYMPTOMS
     Dosage: 0.625MG/ 5MG, ORAL
     Route: 048
     Dates: start: 19960716, end: 20030814
  2. PREMARIN [Suspect]
     Indication: MENOPAUSAL SYMPTOMS
     Dosage: 0.625MG DAILY, ORAL
     Route: 048
     Dates: start: 19941118, end: 19960401
  3. PROGESTIN INJ [Suspect]

REACTIONS (7)
  - BREAST CANCER METASTATIC [None]
  - BREAST CANCER STAGE III [None]
  - CATHETER RELATED COMPLICATION [None]
  - LIPOMA OF BREAST [None]
  - METASTASES TO LYMPH NODES [None]
  - OESTROGEN RECEPTOR ASSAY POSITIVE [None]
  - PROGESTERONE RECEPTOR ASSAY POSITIVE [None]
